FAERS Safety Report 5037229-8 (Version None)
Quarter: 2006Q2

REPORT INFORMATION
  Report Type: 
  Country: None (occurrence: None)
  Receive Date: 20060622
  Receipt Date: 20060615
  Transmission Date: 20061013
  Serious: Yes (Death, Hospitalization)
  Sender: FDA-Public Use
  Company Number: M-06-0488

PATIENT
  Age: 78 Year
  Sex: Female

DRUGS (3)
  1. PACERONE, UNK  STRENGTH, USL [Suspect]
     Dosage: PO
     Route: 048
  2. KETEK [Suspect]
     Indication: BRONCHITIS
     Dosage: 400 MG, BID, PO
     Route: 048
  3. FUROSEMIDE (START-UNK, CONTIN.) [Concomitant]

REACTIONS (9)
  - BLOOD GLUCOSE DECREASED [None]
  - CARDIAC FAILURE [None]
  - CATHETER RELATED INFECTION [None]
  - CEREBROVASCULAR ACCIDENT [None]
  - DIALYSIS [None]
  - HYPOTENSION [None]
  - LOSS OF CONSCIOUSNESS [None]
  - RENAL IMPAIRMENT [None]
  - URINARY TRACT INFECTION [None]
